FAERS Safety Report 18247533 (Version 1)
Quarter: 2020Q3

REPORT INFORMATION
  Report Type: Spontaneous
  Country: GB (occurrence: GB)
  Receive Date: 20200909
  Receipt Date: 20200909
  Transmission Date: 20201103
  Serious: Yes (Other)
  Sender: FDA-Public Use
  Company Number: GB-TEVA-2020-GB-1824424

PATIENT
  Age: 88 Year
  Sex: Male
  Weight: 85.6 kg

DRUGS (17)
  1. FOLIC ACID. [Concomitant]
     Active Substance: FOLIC ACID
  2. TINZAPARIN [Concomitant]
     Active Substance: TINZAPARIN
  3. ATORVASTATIN [Concomitant]
     Active Substance: ATORVASTATIN
  4. CASSIA [Concomitant]
  5. MACROGOL [Concomitant]
     Active Substance: POLYETHYLENE GLYCOLS
  6. LORAZEPAM. [Concomitant]
     Active Substance: LORAZEPAM
  7. OLANZAPINE. [Suspect]
     Active Substance: OLANZAPINE
     Indication: DEMENTIA
     Dosage: 2.5 MG
     Route: 048
     Dates: end: 20200730
  8. DOXYCYCLINE. [Concomitant]
     Active Substance: DOXYCYCLINE
  9. BISOPROLOL [Concomitant]
     Active Substance: BISOPROLOL
  10. OLANZAPINE. [Suspect]
     Active Substance: OLANZAPINE
     Indication: DEMENTIA
     Dosage: 5 MILLIGRAM DAILY; NIGHT
     Route: 048
     Dates: start: 20200731, end: 20200803
  11. MIRTAZAPINE. [Concomitant]
     Active Substance: MIRTAZAPINE
  12. FLUCLOXACILLIN [Concomitant]
     Active Substance: FLUCLOXACILLIN
  13. MESALAZINE [Concomitant]
     Active Substance: MESALAMINE
  14. WARFARIN [Concomitant]
     Active Substance: WARFARIN
  15. TAZOCIN [Concomitant]
     Active Substance: PIPERACILLIN SODIUM\TAZOBACTAM SODIUM
  16. PARACETAMOL [Concomitant]
     Active Substance: ACETAMINOPHEN
  17. HYDROXOCOBALAMIN [Concomitant]
     Active Substance: HYDROXOCOBALAMIN

REACTIONS (2)
  - Electrocardiogram QT prolonged [Recovered/Resolved]
  - Cardiac flutter [Unknown]

NARRATIVE: CASE EVENT DATE: 20200802
